FAERS Safety Report 14403257 (Version 1)
Quarter: 2018Q1

REPORT INFORMATION
  Report Type: Spontaneous
  Country: US (occurrence: US)
  Receive Date: 20180116
  Receipt Date: 20180116
  Transmission Date: 20180509
  Serious: Yes (Hospitalization)
  Sender: FDA-Public Use
  Company Number: None

PATIENT
  Age: 66 Year
  Sex: Female
  Weight: 91.8 kg

DRUGS (25)
  1. MUPIROCIN. [Concomitant]
     Active Substance: MUPIROCIN
  2. MORPHINE [Concomitant]
     Active Substance: MORPHINE
  3. FLUTICASONE. [Concomitant]
     Active Substance: FLUTICASONE
  4. NASAL SPRAY [Concomitant]
     Active Substance: UNSPECIFIED INGREDIENT
  5. ONDANSETRON [Concomitant]
     Active Substance: ONDANSETRON
  6. LORAZEPAM. [Concomitant]
     Active Substance: LORAZEPAM
  7. VITAMIN D [Concomitant]
     Active Substance: CHOLECALCIFEROL
  8. SUCRALFATE. [Concomitant]
     Active Substance: SUCRALFATE
  9. DOXEPIN [Concomitant]
     Active Substance: DOXEPIN
  10. FOLIC ACID. [Concomitant]
     Active Substance: FOLIC ACID
  11. REFRESH TEARS [Concomitant]
     Active Substance: CARBOXYMETHYLCELLULOSE SODIUM
  12. NITROGLYCERIN. [Concomitant]
     Active Substance: NITROGLYCERIN
  13. OXYCODONE [Concomitant]
     Active Substance: OXYCODONE
  14. PROTONIX [Concomitant]
     Active Substance: PANTOPRAZOLE SODIUM
  15. VAGISIL ANTI ITCH ORIGINAL STRENGTH [Concomitant]
     Active Substance: BENZOCAINE\RESORCINOL
  16. SOFOSBUVIR 400 [Suspect]
     Active Substance: SOFOSBUVIR
     Indication: HEPATITIS C
     Route: 048
     Dates: start: 20160420
  17. MOMETASONE [Concomitant]
     Active Substance: MOMETASONE
  18. ACYCLOVIR. [Concomitant]
     Active Substance: ACYCLOVIR
  19. DOCUSATE [Concomitant]
     Active Substance: DOCUSATE
  20. LOTRISONE [Concomitant]
     Active Substance: BETAMETHASONE DIPROPIONATE\CLOTRIMAZOLE
  21. VENTOLIN INHALERS [Concomitant]
  22. CHLORHEXIDINE [Concomitant]
     Active Substance: CHLORHEXIDINE
  23. DACLATASVIR 60 [Suspect]
     Active Substance: DACLATASVIR
     Indication: HEPATITIS C
     Route: 048
     Dates: start: 20160420
  24. DICYCLOMINE [Concomitant]
     Active Substance: DICYCLOMINE HYDROCHLORIDE
  25. ESTRADIOL. [Concomitant]
     Active Substance: ESTRADIOL

REACTIONS (5)
  - Diarrhoea [None]
  - Bradycardia [None]
  - Abdominal pain [None]
  - Nausea [None]
  - Vomiting [None]

NARRATIVE: CASE EVENT DATE: 20160829
